FAERS Safety Report 8886711 (Version 2)
Quarter: 2014Q2

REPORT INFORMATION
  Report Type: Spontaneous
  Country: US (occurrence: US)
  Receive Date: 20121105
  Receipt Date: 20131018
  Transmission Date: 20141212
  Serious: Yes (Other)
  Sender: FDA-Public Use
  Company Number: US-PFIZER INC-2012253221

PATIENT
  Age: 15 Year
  Sex: Male

DRUGS (4)
  1. PHENYTOIN [Suspect]
     Indication: CONVULSION
     Dosage: 100 MG, 4X/DAY
  2. PHENYTOIN [Suspect]
     Dosage: 100 MG, 3X/DAY
  3. PHENOBARBITAL [Suspect]
     Indication: CONVULSION
     Dosage: 30 MG, FIVE TIME A DAY
  4. PHENOBARBITAL [Suspect]
     Dosage: 30 MG, 3X/DAY

REACTIONS (5)
  - Convulsion [Recovering/Resolving]
  - Mental retardation [Recovering/Resolving]
  - Fall [Recovered/Resolved]
  - Lethargy [Recovering/Resolving]
  - Drug level increased [Recovering/Resolving]
